FAERS Safety Report 7907858-X (Version None)
Quarter: 2011Q4

REPORT INFORMATION
  Report Type: 
  Country: None (occurrence: None)
  Receive Date: 20111110
  Receipt Date: 20111109
  Transmission Date: 20120403
  Serious: Yes (Other)
  Sender: FDA-Public Use
  Company Number: US-PFIZER INC-2011275086

PATIENT
  Sex: Female
  Weight: 77.098 kg

DRUGS (5)
  1. METOPROLOL [Concomitant]
     Indication: HYPERTENSION
     Dosage: UNK, 3X/DAY
  2. AMBIEN [Concomitant]
     Indication: SLEEP DISORDER
     Dosage: UNK, 1X/DAY
  3. PROZAC [Concomitant]
     Dosage: UNK
  4. BUSPIRONE [Concomitant]
     Dosage: UNK
  5. CHANTIX [Suspect]
     Indication: SMOKING CESSATION THERAPY
     Dosage: 0.5 MG, 1X/DAY
     Route: 048
     Dates: start: 20111107

REACTIONS (4)
  - MEMORY IMPAIRMENT [None]
  - AGGRESSION [None]
  - CRYING [None]
  - IRRITABILITY [None]
